FAERS Safety Report 9156795 (Version 1)
Quarter: 2013Q1

REPORT INFORMATION
  Report Type: Spontaneous
  Country: DE (occurrence: DE)
  Receive Date: 20130312
  Receipt Date: 20130312
  Transmission Date: 20140127
  Serious: Yes (Hospitalization)
  Sender: FDA-Public Use
  Company Number: DE-ACCORD-016709

PATIENT
  Age: 41 Year
  Sex: Female

DRUGS (3)
  1. CISPLATIN [Suspect]
     Indication: LUNG ADENOCARCINOMA
     Dosage: 7 CYCLES ADMINISTERED
  2. GEMCITABINE [Suspect]
     Indication: LUNG ADENOCARCINOMA
     Dosage: 7 CYCLES ADMINISTERED
  3. BEVACIZUMAB [Suspect]
     Indication: LUNG ADENOCARCINOMA
     Dosage: 7 CYCLES ADMINISTERED

REACTIONS (2)
  - Posterior reversible encephalopathy syndrome [Recovering/Resolving]
  - Off label use [Unknown]
